FAERS Safety Report 21779305 (Version 4)
Quarter: 2023Q1

REPORT INFORMATION
  Report Type: Spontaneous
  Country: DE (occurrence: DE)
  Receive Date: 20221226
  Receipt Date: 20230127
  Transmission Date: 20230417
  Serious: Yes (Hospitalization)
  Sender: FDA-Public Use
  Company Number: DE-GRUNENTHAL-2022-110400

PATIENT
  Age: 47 Year
  Sex: Male
  Weight: 76 kg

DRUGS (2)
  1. QUTENZA [Suspect]
     Active Substance: CAPSAICIN
     Indication: Neuropathy peripheral
     Dosage: 179 MILLIGRAM
     Route: 065
     Dates: start: 20221207, end: 20221207
  2. QUTENZA [Suspect]
     Active Substance: CAPSAICIN
     Indication: Neuralgia

REACTIONS (3)
  - Application site necrosis [Not Recovered/Not Resolved]
  - Application site ulcer [Unknown]
  - Application site eczema [Unknown]

NARRATIVE: CASE EVENT DATE: 20221207
